FAERS Safety Report 6167801-3 (Version None)
Quarter: 2009Q2

REPORT INFORMATION
  Report Type: 
  Country: None (occurrence: None)
  Receive Date: 20090427
  Receipt Date: 20090420
  Transmission Date: 20091009
  Serious: Yes (Other)
  Sender: FDA-Public Use
  Company Number: JP-JNJFOC-20090403840

PATIENT
  Age: 21 Year
  Sex: Male

DRUGS (7)
  1. RISPERDAL [Suspect]
     Indication: DRUG USE FOR UNKNOWN INDICATION
     Route: 048
  2. SOLANAX [Concomitant]
     Route: 048
  3. DEPAKENE [Concomitant]
     Route: 048
  4. PAXIL [Concomitant]
     Route: 048
  5. HALCION [Concomitant]
     Route: 048
  6. WYPAX [Concomitant]
     Route: 048
  7. CLEAMINE-A [Concomitant]
     Route: 048

REACTIONS (3)
  - HYPOAESTHESIA ORAL [None]
  - JOINT STIFFNESS [None]
  - PARALYSIS [None]
